FAERS Safety Report 5382005-X (Version None)
Quarter: 2007Q3

REPORT INFORMATION
  Report Type: 
  Country: None (occurrence: None)
  Receive Date: 20070709
  Receipt Date: 20070704
  Transmission Date: 20080115
  Serious: Yes (Hospitalization)
  Sender: FDA-Public Use
  Company Number: B0477932A

PATIENT
  Age: 64 Year
  Sex: Male

DRUGS (11)
  1. AUGMENTIN '125' [Suspect]
     Indication: DRUG USE FOR UNKNOWN INDICATION
     Route: 048
     Dates: start: 20070613, end: 20070620
  2. GLYVENOL [Suspect]
     Indication: DRUG USE FOR UNKNOWN INDICATION
     Route: 065
     Dates: start: 20070615, end: 20070619
  3. LOSARTAN WITH HYDROCHLOROTHIAZIDE [Concomitant]
     Route: 065
     Dates: start: 20070615, end: 20070619
  4. ANOPYRIN [Concomitant]
     Route: 065
  5. LOMIR [Concomitant]
     Route: 065
  6. GLUCOPHAGE [Concomitant]
     Route: 065
  7. HUMULIN 70/30 [Concomitant]
     Route: 065
  8. BETALOC [Concomitant]
     Route: 065
  9. HUMULIN M3 [Concomitant]
     Route: 065
  10. MONOPRIL [Concomitant]
     Route: 065
  11. ATORVASTATIN CALCIUM [Concomitant]
     Route: 065

REACTIONS (7)
  - ERYTHEMA [None]
  - PURPURA [None]
  - RASH [None]
  - RASH PAPULAR [None]
  - RASH PRURITIC [None]
  - TOXIC SKIN ERUPTION [None]
  - URTICARIA [None]
